FAERS Safety Report 25507043 (Version 1)
Quarter: 2025Q3

REPORT INFORMATION
  Report Type: Spontaneous
  Country: US (occurrence: US)
  Receive Date: 20250702
  Receipt Date: 20250702
  Transmission Date: 20251020
  Serious: Yes (Congenital Anomaly, Other)
  Sender: APOTEX
  Company Number: US-APOTEX-2025AP008888

PATIENT

DRUGS (1)
  1. ACETAMINOPHEN [Suspect]
     Active Substance: ACETAMINOPHEN
     Indication: Product used for unknown indication
     Dosage: UNK, QD
     Route: 064

REACTIONS (2)
  - Ductus arteriosus stenosis foetal [Recovered/Resolved]
  - Foetal exposure during pregnancy [Unknown]
